FAERS Safety Report 18526226 (Version 1)
Quarter: 2020Q4

REPORT INFORMATION
  Report Type: Spontaneous
  Country: US (occurrence: US)
  Receive Date: 20201120
  Receipt Date: 20201120
  Transmission Date: 20210114
  Serious: No
  Sender: FDA-Public Use
  Company Number: US-ELI_LILLY_AND_COMPANY-US202011008709

PATIENT
  Age: 64 Year
  Sex: Male

DRUGS (1)
  1. HUMALOG [Suspect]
     Active Substance: INSULIN LISPRO
     Indication: DIABETES MELLITUS
     Dosage: 2-3 U, OTHER (EVERY 6-8 HOURS)
     Route: 065

REACTIONS (3)
  - Flushing [Not Recovered/Not Resolved]
  - Discomfort [Unknown]
  - Blood glucose increased [Unknown]
